FAERS Safety Report 14557523 (Version 3)
Quarter: 2018Q2

REPORT INFORMATION
  Report Type: Spontaneous
  Country: FR (occurrence: FR)
  Receive Date: 20180221
  Receipt Date: 20180418
  Transmission Date: 20180711
  Serious: Yes (Death, Other)
  Sender: FDA-Public Use
  Company Number: FR-BAUSCH-BL-2018-004049

PATIENT
  Age: 63 Year
  Sex: Female

DRUGS (10)
  1. DEXAMETHASONE. [Suspect]
     Active Substance: DEXAMETHASONE
     Indication: GASTROINTESTINAL AMYLOIDOSIS
     Route: 048
     Dates: start: 201308
  2. DEXAMETHASONE. [Suspect]
     Active Substance: DEXAMETHASONE
     Indication: RENAL AMYLOIDOSIS
  3. LENALIDOMIDE [Suspect]
     Active Substance: LENALIDOMIDE
     Indication: KAPOSI^S SARCOMA
  4. DEXAMETHASONE. [Suspect]
     Active Substance: DEXAMETHASONE
     Indication: PARAPROTEINAEMIA
     Route: 048
     Dates: start: 201308
  5. CYCLOPHOSPHAMIDE. [Suspect]
     Active Substance: CYCLOPHOSPHAMIDE
     Indication: GASTROINTESTINAL AMYLOIDOSIS
     Dosage: ON DAYS 1,8,15
     Route: 048
     Dates: start: 201308
  6. CYCLOPHOSPHAMIDE. [Suspect]
     Active Substance: CYCLOPHOSPHAMIDE
     Indication: RENAL AMYLOIDOSIS
  7. LENALIDOMIDE [Suspect]
     Active Substance: LENALIDOMIDE
     Indication: PARAPROTEINAEMIA
     Dosage: FOLLOWING DIALYSIS
     Route: 065
     Dates: start: 201401
  8. VELCADE [Suspect]
     Active Substance: BORTEZOMIB
     Indication: GASTROINTESTINAL AMYLOIDOSIS
     Dosage: ON DAYS 1, 8, 15 AND 21, OF A 28-DAY CYCLE
     Route: 058
     Dates: start: 201308
  9. VELCADE [Suspect]
     Active Substance: BORTEZOMIB
     Indication: RENAL AMYLOIDOSIS
  10. RIBAVIRIN. [Concomitant]
     Active Substance: RIBAVIRIN
     Indication: PRODUCT USED FOR UNKNOWN INDICATION

REACTIONS (2)
  - Kaposi^s sarcoma [Unknown]
  - Renal impairment [Unknown]

NARRATIVE: CASE EVENT DATE: 201310
